FAERS Safety Report 15254127 (Version 3)
Quarter: 2019Q1

REPORT INFORMATION
  Report Type: Spontaneous
  Country: PL (occurrence: PL)
  Receive Date: 20180808
  Receipt Date: 20190205
  Transmission Date: 20190417
  Serious: Yes (Other)
  Sender: FDA-Public Use
  Company Number: PL-AUROBINDO-AUR-APL-2018-040397

PATIENT
  Age: 28 Year
  Sex: Female

DRUGS (13)
  1. QUETIAPINE FUMARATE. [Suspect]
     Active Substance: QUETIAPINE FUMARATE
     Indication: DEPRESSION
     Dosage: 150 MILLIGRAM, DAILY
     Route: 065
  2. PREGABALIN. [Suspect]
     Active Substance: PREGABALIN
     Indication: PERSONALITY DISORDER
     Dosage: 300 MILLIGRAM, DAILY (300-450 MG,QD)
     Route: 065
  3. QUETIAPINE FUMARATE. [Suspect]
     Active Substance: QUETIAPINE FUMARATE
     Indication: FIBROMYALGIA
  4. OLANZAPINE. [Suspect]
     Active Substance: OLANZAPINE
     Indication: MAJOR DEPRESSION
     Dosage: 10 MILLIGRAM, ONCE A DAY
     Route: 065
  5. VALPROATE SODIUM. [Suspect]
     Active Substance: VALPROATE SODIUM
     Indication: MAJOR DEPRESSION
     Dosage: 300 MILLIGRAM, DAILY
     Route: 065
  6. DULOXETINE HYDROCHLORIDE. [Suspect]
     Active Substance: DULOXETINE HYDROCHLORIDE
     Indication: PRODUCT USED FOR UNKNOWN INDICATION
     Dosage: 50 MILLIGRAM, ONCE A DAY
     Route: 065
  7. VENLAFAXINE [Suspect]
     Active Substance: VENLAFAXINE HYDROCHLORIDE
     Indication: MAJOR DEPRESSION
     Dosage: 225 MILLIGRAM, ONCE A DAY
     Route: 065
  8. QUETIAPINE FUMARATE. [Suspect]
     Active Substance: QUETIAPINE FUMARATE
     Indication: PERSONALITY DISORDER
  9. CARBAMAZEPINE. [Suspect]
     Active Substance: CARBAMAZEPINE
     Indication: FIBROMYALGIA
  10. PREGABALIN. [Suspect]
     Active Substance: PREGABALIN
     Indication: FIBROMYALGIA
  11. DULOXETINE HYDROCHLORIDE. [Suspect]
     Active Substance: DULOXETINE HYDROCHLORIDE
     Dosage: 60 MILLIGRAM, ONCE A DAY
     Route: 065
     Dates: start: 201601
  12. DOXEPIN [Concomitant]
     Active Substance: DOXEPIN
     Indication: PRODUCT USED FOR UNKNOWN INDICATION
     Dosage: UNK
     Route: 065
  13. CARBAMAZEPINE. [Suspect]
     Active Substance: CARBAMAZEPINE
     Indication: PERSONALITY DISORDER
     Dosage: 400 MG DAILY
     Route: 065

REACTIONS (11)
  - Somnolence [Unknown]
  - Feeling abnormal [Unknown]
  - Mental impairment [Recovering/Resolving]
  - Self esteem decreased [Recovering/Resolving]
  - Therapy partial responder [Unknown]
  - Weight increased [Unknown]
  - Confusional state [Unknown]
  - Off label use [Unknown]
  - Drug effect incomplete [Unknown]
  - Depression [Recovering/Resolving]
  - Sedation [Unknown]
